FAERS Safety Report 7765794-6 (Version None)
Quarter: 2011Q3

REPORT INFORMATION
  Report Type: 
  Country: None (occurrence: None)
  Receive Date: 20110906
  Receipt Date: 20110729
  Transmission Date: 20111222
  Serious: No
  Sender: FDA-Public Use
  Company Number: 201108001

PATIENT
  Sex: Male

DRUGS (2)
  1. XIAFLEX [Suspect]
     Indication: PRODUCT USED FOR UNKNOWN INDICATION
     Dosage: 1 IN 1 D, INTRALESIONAL
     Route: 026
     Dates: start: 20110728, end: 20110728
  2. ANESTHETICS, LOCAL (ANESTHETICS, LOCAL) [Suspect]
     Dosage: 1 IN 1 D, INJECTION
     Dates: start: 20110729, end: 20110729

REACTIONS (1)
  - DRUG INEFFECTIVE [None]
